FAERS Safety Report 7919365-9 (Version None)
Quarter: 2011Q4

REPORT INFORMATION
  Report Type: 
  Country: None (occurrence: None)
  Receive Date: 20111117
  Receipt Date: 20111110
  Transmission Date: 20120403
  Serious: Yes (Hospitalization, Other)
  Sender: FDA-Public Use
  Company Number: JP-JNJFOC-20110912037

PATIENT
  Sex: Female
  Weight: 45 kg

DRUGS (2)
  1. LYRICA [Suspect]
     Indication: PAIN
     Dosage: 1 PER 1 DAY
     Route: 048
     Dates: start: 20110901, end: 20110926
  2. TRAMADOL HYDROCHLORIDE/ACETAMINOPHEN [Suspect]
     Indication: PAIN
     Dosage: 4 DF X 1 PER 1 HOUR
     Route: 048
     Dates: start: 20110915, end: 20110926

REACTIONS (3)
  - ILEUS [None]
  - HEPATIC FUNCTION ABNORMAL [None]
  - CONSTIPATION [None]
